FAERS Safety Report 5317045-X (Version None)
Quarter: 2007Q2

REPORT INFORMATION
  Report Type: 
  Country: None (occurrence: None)
  Receive Date: 20070504
  Receipt Date: 20070427
  Transmission Date: 20071010
  Serious: Yes (Congenital Anomaly)
  Sender: FDA-Public Use
  Company Number: GB-PFIZER INC-2006029893

PATIENT
  Sex: Male
  Weight: 3.37 kg

DRUGS (6)
  1. VIRACEPT [Suspect]
     Indication: HIV TEST POSITIVE
     Dosage: DAILY DOSE:2500MG-FREQ:UNKNOWN
     Route: 048
     Dates: start: 20040130, end: 20040601
  2. TRUVADA [Suspect]
     Indication: HIV TEST POSITIVE
     Dosage: DAILY DOSE:300MG-FREQ:UNKNOWN
     Route: 048
     Dates: start: 20040601, end: 20040720
  3. COMBIVIR [Suspect]
     Indication: HIV TEST POSITIVE
     Dosage: DAILY DOSE:600MG-FREQ:UNKNOWN
     Route: 048
     Dates: start: 20040130, end: 20040601
  4. KALETRA [Suspect]
     Indication: HIV TEST POSITIVE
     Dosage: DAILY DOSE:600MG-FREQ:UNKNOWN
     Route: 048
  5. RETROVIR [Suspect]
     Indication: HIV TEST POSITIVE
     Dosage: DAILY DOSE:600MG-FREQ:UNKNOWN
     Route: 048
     Dates: start: 20040601, end: 20040720
  6. FOLIC ACID [Concomitant]
     Route: 065

REACTIONS (6)
  - ABDOMINAL DISTENSION [None]
  - ABDOMINAL HERNIA [None]
  - CARDIAC MURMUR [None]
  - CONGENITAL ANOMALY [None]
  - CRYPTORCHISM [None]
  - DRUG EXPOSURE DURING PREGNANCY [None]
